FAERS Safety Report 9156976 (Version 1)
Quarter: 2013Q1

REPORT INFORMATION
  Report Type: Spontaneous
  Country: KE (occurrence: KE)
  Receive Date: 20130312
  Receipt Date: 20130312
  Transmission Date: 20140127
  Serious: Yes (Death)
  Sender: FDA-Public Use
  Company Number: PHHY2013KE020711

PATIENT
  Sex: Male

DRUGS (3)
  1. GLIVEC [Suspect]
     Indication: CHRONIC MYELOID LEUKAEMIA
     Dosage: 400 MG, UNK
     Route: 048
  2. GLIVEC [Suspect]
     Dosage: 600 MG
     Route: 048
     Dates: start: 20121112, end: 20121221
  3. ANTIBIOTICS [Concomitant]
     Dosage: UNK UKN, UNK

REACTIONS (3)
  - Haemorrhage [Fatal]
  - Thrombocytopenia [Fatal]
  - Chronic myeloid leukaemia [Fatal]
